FAERS Safety Report 18692421 (Version 4)
Quarter: 2021Q2

REPORT INFORMATION
  Report Type: Report from Study
  Country: US (occurrence: US)
  Receive Date: 20210103
  Receipt Date: 20210619
  Transmission Date: 20210717
  Serious: No
  Sender: FDA-Public Use
  Company Number: NVSC2020US342455

PATIENT
  Sex: Female

DRUGS (2)
  1. HYDRALAZINE [Concomitant]
     Active Substance: HYDRALAZINE HYDROCHLORIDE
     Indication: PRODUCT USED FOR UNKNOWN INDICATION
     Route: 065
  2. ENTRESTO [Suspect]
     Active Substance: SACUBITRIL\VALSARTAN
     Indication: PRODUCT USED FOR UNKNOWN INDICATION
     Dosage: UNK, QD
     Route: 048
     Dates: start: 202010

REACTIONS (10)
  - Peripheral swelling [Recovering/Resolving]
  - Nausea [Unknown]
  - Back pain [Recovering/Resolving]
  - Drug interaction [Unknown]
  - Blood pressure abnormal [Recovering/Resolving]
  - Limb injury [Recovering/Resolving]
  - General physical health deterioration [Recovering/Resolving]
  - Gastroenteritis viral [Unknown]
  - Malaise [Unknown]
  - Abdominal discomfort [Unknown]
